FAERS Safety Report 6011820-4 (Version None)
Quarter: 2008Q4

REPORT INFORMATION
  Report Type: 
  Country: None (occurrence: None)
  Receive Date: 20081126
  Receipt Date: 20071003
  Transmission Date: 20090506
  Serious: Yes (Hospitalization)
  Sender: FDA-Public Use
  Company Number: 162507USA

PATIENT
  Age: 56 Year
  Sex: Female

DRUGS (14)
  1. GEMFIBROZIL [Suspect]
     Dates: start: 20070605
  2. WARFARIN SODIUM [Suspect]
     Indication: ATRIAL FIBRILLATION
     Dosage: (5 MG), ORAL
     Route: 048
     Dates: start: 20050318, end: 20070611
  3. AZELASTINE HCL [Concomitant]
  4. CYCLOBENZAPRINE HCL [Concomitant]
  5. VALSARTAN [Concomitant]
  6. FUROSEMIDE [Concomitant]
  7. GLIMEPIRIDE [Concomitant]
  8. INSULIN [Concomitant]
  9. JANUVIA [Concomitant]
  10. ATORVASTATIN CALCIUM [Concomitant]
  11. METOPROLOL TARTRATE [Concomitant]
  12. NORTRIPTYLINE HCL [Concomitant]
  13. POTASSIUM CHLORIDE [Concomitant]
  14. EZETIMIBE [Concomitant]

REACTIONS (2)
  - DRUG INTERACTION [None]
  - INTERNATIONAL NORMALISED RATIO INCREASED [None]
